FAERS Safety Report 7692217-8 (Version None)
Quarter: 2011Q3

REPORT INFORMATION
  Report Type: 
  Country: None (occurrence: None)
  Receive Date: 20110818
  Receipt Date: 20110809
  Transmission Date: 20111222
  Serious: Yes (Hospitalization)
  Sender: FDA-Public Use
  Company Number: US-ASTRAZENECA-2011SE47856

PATIENT
  Age: 74 Year
  Sex: Female

DRUGS (2)
  1. SEROQUEL [Suspect]
     Route: 048
  2. INHALERS [Concomitant]

REACTIONS (7)
  - FALL [None]
  - CYANOSIS [None]
  - PURPURA [None]
  - OEDEMA PERIPHERAL [None]
  - LOSS OF CONSCIOUSNESS [None]
  - CONTUSION [None]
  - BALANCE DISORDER [None]
